FAERS Safety Report 11990959 (Version 8)
Quarter: 2017Q4

REPORT INFORMATION
  Report Type: Report from Study
  Country: CN (occurrence: CN)
  Receive Date: 20160202
  Receipt Date: 20171207
  Transmission Date: 20180320
  Serious: Yes (Other)
  Sender: FDA-Public Use
  Company Number: PHHY2015CN142369

PATIENT
  Age: 58 Year
  Sex: Male
  Weight: 58.7 kg

DRUGS (120)
  1. MYFORTIC [Suspect]
     Active Substance: MYCOPHENOLATE SODIUM
     Dosage: 720 MG, QD
     Route: 065
     Dates: start: 20151005, end: 20151201
  2. MYFORTIC [Suspect]
     Active Substance: MYCOPHENOLATE SODIUM
     Dosage: 720 MG, QD
     Route: 065
     Dates: start: 20151202
  3. METHYLPREDNISOLONE. [Suspect]
     Active Substance: METHYLPREDNISOLONE
     Dosage: 400 MG, QD
     Route: 065
     Dates: start: 20150918, end: 20150918
  4. CICLOSPORIN [Suspect]
     Active Substance: CYCLOSPORINE
     Dosage: 250 MG, QD
     Route: 065
     Dates: start: 20151005, end: 20151201
  5. ALBUMIN HUMAN [Concomitant]
     Active Substance: ALBUMIN HUMAN
     Dosage: 12500 MG, QD
     Route: 042
     Dates: start: 20151007, end: 20151014
  6. PANTOPRAZOLE [Concomitant]
     Active Substance: PANTOPRAZOLE
     Dosage: 40 MG, QD
     Route: 048
     Dates: start: 20151202
  7. CALCII CHLORIDUM//CALCIUM CHLORIDE [Concomitant]
     Dosage: 4000 MG, QD
     Route: 065
     Dates: start: 20150920, end: 20150920
  8. LANSOPRAZOLE. [Concomitant]
     Active Substance: LANSOPRAZOLE
     Indication: DUODENAL ULCER
     Dosage: 30 MG, QD
     Route: 065
     Dates: start: 20150908, end: 20150908
  9. FUROSEMIDE. [Concomitant]
     Active Substance: FUROSEMIDE
     Indication: HYPERTENSION
     Dosage: 40 MG, BID
     Route: 042
  10. FUROSEMIDE. [Concomitant]
     Active Substance: FUROSEMIDE
     Dosage: 40 MG, QD
     Route: 042
     Dates: start: 20150923, end: 20150923
  11. AMPHOTERICIN B, LIPOSOME [Concomitant]
     Active Substance: AMPHOTERICIN B
     Indication: LUNG INFECTION
     Dosage: 10 MG, QD
     Route: 042
     Dates: start: 20151231, end: 20160106
  12. MYFORTIC [Suspect]
     Active Substance: MYCOPHENOLATE SODIUM
     Indication: RENAL TRANSPLANT
     Dosage: 1440 MG, QD
     Route: 065
     Dates: start: 20150908, end: 20150911
  13. BASILIXIMAB [Suspect]
     Active Substance: BASILIXIMAB
     Indication: RENAL TRANSPLANT
     Dosage: 20 MG, QD
     Route: 065
     Dates: start: 20150911, end: 20150911
  14. CICLOSPORIN [Suspect]
     Active Substance: CYCLOSPORINE
     Dosage: 200 MG, QD
     Route: 065
     Dates: start: 20151202, end: 20151218
  15. CICLOSPORIN [Suspect]
     Active Substance: CYCLOSPORINE
     Dosage: 175 MG, QD
     Route: 065
     Dates: start: 20151218, end: 20151230
  16. ALBUMIN HUMAN [Concomitant]
     Active Substance: ALBUMIN HUMAN
     Dosage: 12500 MG,QD
     Route: 042
     Dates: start: 20151005, end: 20151005
  17. IPRATROPIUM BROMIDE. [Concomitant]
     Active Substance: IPRATROPIUM BROMIDE
     Dosage: 0.5 MG, BID
     Route: 055
     Dates: start: 20151005, end: 20151102
  18. BUTIOL//DEXAMETHASONE SODIUM PHOSPHATE [Concomitant]
     Indication: ANTIINFLAMMATORY THERAPY
     Dosage: 5 MG, QD
     Route: 042
     Dates: start: 20150911, end: 20150911
  19. BUTIOL//DEXAMETHASONE SODIUM PHOSPHATE [Concomitant]
     Indication: IMMUNOSUPPRESSION
  20. BUTIOL//DEXAMETHASONE SODIUM PHOSPHATE [Concomitant]
     Indication: HYPERSENSITIVITY
  21. ALOSTIN//ALPROSTADIL [Concomitant]
     Indication: THROMBOSIS PROPHYLAXIS
     Dosage: 10 MG, BID
     Route: 042
     Dates: start: 20150909, end: 20150921
  22. ALOSTIN//ALPROSTADIL [Concomitant]
     Dosage: 0.01 MG, BID
     Route: 065
     Dates: start: 20151005, end: 20151005
  23. DOXAZIN//DOXAZOSIN MESILATE [Concomitant]
     Dosage: 4 MG, BID
     Route: 048
     Dates: start: 20150917, end: 20151004
  24. ULINASTATIN [Concomitant]
     Active Substance: ULINASTATIN
     Indication: PROPHYLAXIS
     Dosage: 20 WU, QD
     Route: 042
     Dates: start: 20150909, end: 20150930
  25. NIFEDIPINE. [Concomitant]
     Active Substance: NIFEDIPINE
     Indication: HYPERTENSION
     Dosage: 0.03 G, QD
     Route: 048
     Dates: start: 20150910, end: 20151004
  26. FUROSEMIDE. [Concomitant]
     Active Substance: FUROSEMIDE
     Dosage: 20 MG, BID
     Route: 042
     Dates: start: 20150925, end: 20150925
  27. FUROSEMIDE. [Concomitant]
     Active Substance: FUROSEMIDE
     Dosage: 20 MG, BID
     Route: 042
     Dates: start: 20151003, end: 20151003
  28. CASPOFUNGIN ACETATE. [Concomitant]
     Active Substance: CASPOFUNGIN ACETATE
     Indication: LUNG INFECTION
     Dosage: 50 MG, QD
     Route: 042
     Dates: start: 20151231
  29. MYCOPHENOLATE SODIUM [Concomitant]
     Active Substance: MYCOPHENOLATE SODIUM
     Dosage: 1080 MG/DL, UNK
     Route: 065
     Dates: start: 20150913, end: 20151005
  30. ALBUMIN HUMAN [Concomitant]
     Active Substance: ALBUMIN HUMAN
     Indication: PROPHYLAXIS
     Dosage: 12500 MG, QD
     Route: 042
     Dates: start: 20150923, end: 20150928
  31. PANTOPRAZOLE [Concomitant]
     Active Substance: PANTOPRAZOLE
     Dosage: 40 MG, QD
     Route: 048
     Dates: start: 20151005, end: 20151102
  32. AMCAL VITAMIN C [Concomitant]
     Indication: NUTRITIONAL SUPPLEMENTATION
     Dosage: 2000 MG, QD
     Route: 042
     Dates: start: 20150908, end: 20150916
  33. SULODEXIDE [Concomitant]
     Active Substance: SULODEXIDE
     Dosage: 1 DF, BID
     Route: 048
     Dates: start: 20150910, end: 20150926
  34. SULODEXIDE [Concomitant]
     Active Substance: SULODEXIDE
     Dosage: 250 LSU, BID
     Route: 048
     Dates: start: 20151202
  35. INSULIN [Concomitant]
     Active Substance: INSULIN NOS
     Indication: BLOOD GLUCOSE ABNORMAL
     Dosage: 4 IU, BID
     Route: 042
     Dates: start: 20150908, end: 20150909
  36. LANSOPRAZOLE. [Concomitant]
     Active Substance: LANSOPRAZOLE
     Indication: HAEMORRHAGE
  37. FUROSEMIDE. [Concomitant]
     Active Substance: FUROSEMIDE
     Indication: POLYURIA
     Dosage: 20 MG, BID
     Route: 042
     Dates: start: 20150923, end: 20150923
  38. AMPHOTERICIN B, LIPOSOME [Concomitant]
     Active Substance: AMPHOTERICIN B
     Dosage: 15 MG, QD
     Route: 042
     Dates: start: 20160106, end: 20160108
  39. METHYLPREDNISOLONE. [Suspect]
     Active Substance: METHYLPREDNISOLONE
     Dosage: 300 MG, QD
     Route: 065
     Dates: start: 20150919, end: 20150920
  40. METHYLPREDNISOLONE W/SUCCINATE SODIUM [Concomitant]
     Active Substance: METHYLPREDNISOLONE SODIUM SUCCINATE
     Indication: ANTIINFLAMMATORY THERAPY
     Dosage: 500 MG, QD
     Route: 065
     Dates: start: 20150908, end: 20150911
  41. PANTOPRAZOLE [Concomitant]
     Active Substance: PANTOPRAZOLE
     Indication: PROPHYLAXIS
     Dosage: 40 MG, QD
     Route: 048
     Dates: start: 20150927, end: 20151004
  42. CALCII CHLORIDUM//CALCIUM CHLORIDE [Concomitant]
     Dosage: 4000 UNK, UNK
     Route: 042
     Dates: start: 20150920, end: 20150920
  43. NIFEDIPINE. [Concomitant]
     Active Substance: NIFEDIPINE
     Dosage: 10 MG, QD
     Route: 048
     Dates: start: 20150912, end: 20150912
  44. NIFEDIPINE. [Concomitant]
     Active Substance: NIFEDIPINE
     Dosage: 0.3 G, BID
     Route: 065
     Dates: start: 20151005
  45. DOPAMINE [Concomitant]
     Active Substance: DOPAMINE\DOPAMINE HYDROCHLORIDE
     Indication: PROPHYLAXIS
     Dosage: 20 MG, QD
     Route: 042
     Dates: start: 20150910, end: 20150910
  46. FUROSEMIDE. [Concomitant]
     Active Substance: FUROSEMIDE
     Indication: ACUTE KIDNEY INJURY
     Dosage: 40 MG, BID
     Route: 042
     Dates: start: 20150921, end: 20150921
  47. ALLOPURINOL. [Concomitant]
     Active Substance: ALLOPURINOL
     Indication: PROPHYLAXIS
     Dosage: 1000 MG, BID
     Route: 048
     Dates: start: 20151202
  48. AMBROXOL HYDROCHLORIDE [Concomitant]
     Active Substance: AMBROXOL HYDROCHLORIDE
     Indication: PRODUCTIVE COUGH
     Dosage: 15 MG, BID
     Route: 055
     Dates: start: 20151005
  49. SULFAMETHOXAZOLE [Concomitant]
     Active Substance: SULFAMETHOXAZOLE
     Indication: LUNG INFECTION
     Dosage: 960 MG, TID
     Route: 042
     Dates: start: 20151231
  50. METHYLPREDNISOLONE. [Suspect]
     Active Substance: METHYLPREDNISOLONE
     Indication: KIDNEY TRANSPLANT REJECTION
     Dosage: 500 MG, QD
     Route: 065
     Dates: start: 20150908, end: 20150911
  51. METHYLPREDNISOLONE. [Suspect]
     Active Substance: METHYLPREDNISOLONE
     Dosage: 400 MG, QD
     Route: 065
     Dates: start: 20151231, end: 20160104
  52. BASILIXIMAB [Suspect]
     Active Substance: BASILIXIMAB
     Indication: PROPHYLAXIS AGAINST TRANSPLANT REJECTION
     Dosage: 20 MG, QD
     Route: 065
     Dates: start: 20150908, end: 20150908
  53. PREDNISONE ACETATE [Concomitant]
     Active Substance: PREDNISONE ACETATE
     Indication: PRODUCT USED FOR UNKNOWN INDICATION
     Dosage: 30 MG, QD
     Route: 065
     Dates: start: 20150913
  54. PREDNISONE ACETATE [Concomitant]
     Active Substance: PREDNISONE ACETATE
     Dosage: 30 MG, QD
     Route: 065
     Dates: start: 20151005
  55. SODIUM BICARBONATE. [Concomitant]
     Active Substance: SODIUM BICARBONATE
     Indication: ACID BASE BALANCE
  56. ADALAT [Concomitant]
     Active Substance: NIFEDIPINE
     Dosage: 300 MG, BID
     Route: 065
  57. LIGUSTRAZINE [Concomitant]
     Active Substance: TETRAMETHYLPYRAZINE
     Indication: HYPERTENSION
     Dosage: 0.1 MG, BID
     Route: 048
     Dates: start: 20151005, end: 20151005
  58. METHYLPREDNISOLONE W/SUCCINATE SODIUM [Concomitant]
     Active Substance: METHYLPREDNISOLONE SODIUM SUCCINATE
     Indication: PROPHYLAXIS AGAINST TRANSPLANT REJECTION
     Dosage: 400 MG, QD
     Route: 065
     Dates: start: 20150918, end: 20150918
  59. METHYLPREDNISOLONE W/SUCCINATE SODIUM [Concomitant]
     Active Substance: METHYLPREDNISOLONE SODIUM SUCCINATE
     Indication: IMMUNOSUPPRESSION
  60. METOPROLOL TARTRATE. [Concomitant]
     Active Substance: METOPROLOL TARTRATE
     Indication: HYPERTENSION
     Dosage: 25 MG, BID
     Route: 048
     Dates: start: 20150909, end: 20151004
  61. CALCII CHLORIDUM//CALCIUM CHLORIDE [Concomitant]
     Indication: SUPPLEMENTATION THERAPY
     Dosage: 3000 MG, QD
     Route: 042
     Dates: start: 20150915, end: 20150915
  62. LACTULOSA [Concomitant]
     Active Substance: LACTULOSE
     Indication: CONSTIPATION PROPHYLAXIS
     Dosage: 66700 MG, QD
     Route: 048
     Dates: start: 20151009, end: 20151009
  63. SULODEXIDE [Concomitant]
     Active Substance: SULODEXIDE
     Dosage: 1 DF, BID
     Route: 048
     Dates: start: 20150926, end: 20150926
  64. SULODEXIDE [Concomitant]
     Active Substance: SULODEXIDE
     Dosage: 1 DF, BID
     Route: 048
     Dates: start: 20151005, end: 20151102
  65. AMPHOTERICIN B. [Concomitant]
     Active Substance: AMPHOTERICIN B
     Indication: ANTIFUNGAL PROPHYLAXIS
     Dosage: 10 MG, QD
     Route: 042
     Dates: start: 20150908, end: 20150921
  66. FUROSEMIDE. [Concomitant]
     Active Substance: FUROSEMIDE
     Dosage: 20 MG, BID
     Route: 042
     Dates: start: 20151005, end: 20151024
  67. FUROSEMIDE. [Concomitant]
     Active Substance: FUROSEMIDE
     Dosage: 20 MG, QD
     Route: 042
     Dates: start: 20150920, end: 20150920
  68. FUROSEMIDE. [Concomitant]
     Active Substance: FUROSEMIDE
     Dosage: 30 MG, QD
     Route: 042
     Dates: start: 20150908, end: 20150908
  69. CARDURA [Concomitant]
     Active Substance: DOXAZOSIN MESYLATE
     Indication: HYPERTENSION
     Dosage: 4 MG, BID
     Route: 065
     Dates: start: 20151005
  70. CEFOPERAZONE SODIUM W/TAZOBACTAM [Concomitant]
     Indication: PRODUCT USED FOR UNKNOWN INDICATION
     Dosage: 2 G, BID
     Route: 065
     Dates: start: 20150908
  71. AMBROXOL HYDROCHLORIDE [Concomitant]
     Active Substance: AMBROXOL HYDROCHLORIDE
     Indication: PROPHYLAXIS
     Dosage: 15 MG, BID
     Route: 055
     Dates: start: 20150908, end: 20151004
  72. AK-DEX//DEXAMETHASONE SODIUM PHOSPHATE [Concomitant]
     Indication: ALLERGY PROPHYLAXIS
     Dosage: 5 MG, QD
     Route: 042
     Dates: start: 20150911, end: 20150911
  73. AMPHOTERICIN B, LIPOSOME [Concomitant]
     Active Substance: AMPHOTERICIN B
     Dosage: 20 MG, QD
     Route: 042
     Dates: start: 20160109
  74. MYFORTIC [Suspect]
     Active Substance: MYCOPHENOLATE SODIUM
     Indication: PROPHYLAXIS AGAINST TRANSPLANT REJECTION
     Dosage: 1120 MG, QD
     Route: 065
     Dates: start: 20150911, end: 20150913
  75. MYFORTIC [Suspect]
     Active Substance: MYCOPHENOLATE SODIUM
     Dosage: 1080 MG, QD
     Route: 065
     Dates: start: 20150913, end: 20151005
  76. PREDNISONE. [Suspect]
     Active Substance: PREDNISONE
     Indication: ANTIALLERGIC THERAPY
     Dosage: 20 MG, QD
     Route: 065
     Dates: start: 20151202, end: 20151230
  77. ALBUMIN HUMAN [Concomitant]
     Active Substance: ALBUMIN HUMAN
     Indication: NUTRITIONAL SUPPLEMENTATION
     Dosage: 12500 MG, QD
     Route: 042
     Dates: start: 20151002, end: 20151004
  78. SODIUM BICARBONATE. [Concomitant]
     Active Substance: SODIUM BICARBONATE
     Indication: NUTRITIONAL SUPPLEMENTATION
     Dosage: 150 ML, QD
     Route: 042
     Dates: start: 20150908, end: 20150916
  79. SODIUM BICARBONATE. [Concomitant]
     Active Substance: SODIUM BICARBONATE
     Indication: PROPHYLAXIS
     Dosage: 1500 MG, BID
     Route: 048
     Dates: start: 20151202, end: 20151230
  80. ADALAT [Concomitant]
     Active Substance: NIFEDIPINE
     Indication: HYPERTENSION
     Dosage: 30 MG, QD
     Route: 065
  81. LIGUSTRAZINE [Concomitant]
     Active Substance: TETRAMETHYLPYRAZINE
     Indication: PROPHYLAXIS
     Dosage: 120 MG, QD
     Route: 042
     Dates: start: 20150921, end: 20151004
  82. METHYLPREDNISOLONE W/SUCCINATE SODIUM [Concomitant]
     Active Substance: METHYLPREDNISOLONE SODIUM SUCCINATE
     Indication: ANTIALLERGIC THERAPY
     Dosage: 300 MG, QD
     Route: 065
     Dates: start: 20150919, end: 20150920
  83. DOXAZIN//DOXAZOSIN MESILATE [Concomitant]
     Dosage: 4 MG, BID
     Route: 048
     Dates: start: 20151005, end: 20151102
  84. AMCAL VITAMIN C [Concomitant]
     Indication: VITAMIN C DEFICIENCY
     Dosage: 1000 MG, QD
     Route: 042
     Dates: start: 20150908, end: 20150916
  85. SULODEXIDE [Concomitant]
     Active Substance: SULODEXIDE
     Indication: THROMBOSIS
     Dosage: 250 LSU, BID
     Route: 065
     Dates: start: 20150910
  86. SULODEXIDE [Concomitant]
     Active Substance: SULODEXIDE
     Indication: PROPHYLAXIS
     Dosage: 250 LSU, BID
     Route: 065
     Dates: start: 20151005
  87. NITROGLYCERIN. [Concomitant]
     Active Substance: NITROGLYCERIN
     Indication: PROPHYLAXIS
     Dosage: 10 MG, QD
     Route: 042
     Dates: start: 20150908, end: 20150909
  88. FUROSEMIDE. [Concomitant]
     Active Substance: FUROSEMIDE
     Indication: PROPHYLAXIS
     Dosage: 20 MG, QD
     Route: 042
     Dates: start: 20151004, end: 20151004
  89. FUROSEMIDE. [Concomitant]
     Active Substance: FUROSEMIDE
     Dosage: 20 MG, BID
     Route: 042
     Dates: start: 20150927, end: 20150927
  90. FUROSEMIDE. [Concomitant]
     Active Substance: FUROSEMIDE
     Dosage: 20 MG, BID
     Route: 042
     Dates: start: 20150919, end: 20150919
  91. FUROSEMIDE. [Concomitant]
     Active Substance: FUROSEMIDE
     Dosage: 200 MG, QD
     Route: 042
     Dates: start: 20150910, end: 20150910
  92. MYCOPHENOLATE SODIUM [Concomitant]
     Active Substance: MYCOPHENOLATE SODIUM
     Indication: PRODUCT USED FOR UNKNOWN INDICATION
     Dosage: 1440 MG/DL, UNK
     Route: 065
     Dates: start: 20150908, end: 20150911
  93. MYCOPHENOLATE SODIUM [Concomitant]
     Active Substance: MYCOPHENOLATE SODIUM
     Dosage: 1080 MG/DL, UNK
     Route: 065
     Dates: start: 20151005, end: 20151005
  94. MYCOPHENOLATE SODIUM [Concomitant]
     Active Substance: MYCOPHENOLATE SODIUM
     Dosage: 720 MG/DL, UNK
     Route: 065
     Dates: start: 20151202
  95. CICLOSPORIN [Suspect]
     Active Substance: CYCLOSPORINE
     Indication: PRODUCT USED FOR UNKNOWN INDICATION
     Dosage: 200 MG, QD
     Route: 065
     Dates: start: 20150908, end: 20151005
  96. OMEPRAZOLE SODIUM [Concomitant]
     Active Substance: OMEPRAZOLE SODIUM
     Indication: GASTRIC ULCER
     Dosage: 40 MG, QD
     Route: 042
     Dates: start: 20150908, end: 20150926
  97. METOPROLOL TARTRATE. [Concomitant]
     Active Substance: METOPROLOL TARTRATE
     Dosage: 25 MG, BID
     Route: 048
     Dates: start: 20151202
  98. ALOSTIN//ALPROSTADIL [Concomitant]
     Indication: HYPERTENSION
     Dosage: 0.02 MG, BID
     Route: 065
     Dates: start: 20151001, end: 20151001
  99. DOXAZIN//DOXAZOSIN MESILATE [Concomitant]
     Indication: HYPERTENSION
     Dosage: 4 MG, BID
     Route: 048
     Dates: start: 20150917, end: 20150917
  100. DOXAZIN//DOXAZOSIN MESILATE [Concomitant]
     Dosage: 4 MG, BID
     Route: 048
     Dates: start: 20151202
  101. ADVACAL//CALCIUM [Concomitant]
     Dosage: 4000 MG, QD
     Route: 041
     Dates: start: 20150917, end: 20150917
  102. ADVACAL//CALCIUM [Concomitant]
     Dosage: 4000 MG, QD
     Route: 042
     Dates: start: 20150920, end: 20150920
  103. EDOSTENE [Concomitant]
     Indication: CONSTIPATION
     Dosage: 1200 MG, QD
     Route: 048
     Dates: start: 20150910, end: 20151004
  104. CALCII CHLORIDUM//CALCIUM CHLORIDE [Concomitant]
     Dosage: 4000 MG, QD
     Route: 042
     Dates: start: 20150917, end: 20150917
  105. NIFEDIPINE. [Concomitant]
     Active Substance: NIFEDIPINE
     Dosage: 300 MG, BID
     Route: 048
     Dates: start: 20151202
  106. MYFORTIC [Suspect]
     Active Substance: MYCOPHENOLATE SODIUM
     Dosage: 1080 MG, QD
     Route: 065
     Dates: start: 20151005, end: 20151005
  107. PREDNISONE. [Suspect]
     Active Substance: PREDNISONE
     Indication: KIDNEY TRANSPLANT REJECTION
     Dosage: 30 MG, QD
     Route: 065
     Dates: start: 20150913, end: 20151004
  108. PREDNISONE. [Suspect]
     Active Substance: PREDNISONE
     Indication: ANTIINFLAMMATORY THERAPY
     Dosage: 60 MG, QD
     Route: 065
     Dates: start: 20151005, end: 20151201
  109. PREDNISONE. [Suspect]
     Active Substance: PREDNISONE
     Indication: IMMUNOSUPPRESSION
     Dosage: 20 MG, QD
     Route: 065
     Dates: start: 20151231, end: 20160104
  110. IPRATROPIUM BROMIDE. [Concomitant]
     Active Substance: IPRATROPIUM BROMIDE
     Indication: PROPHYLAXIS
     Dosage: 0.5 MG, BID
     Route: 055
     Dates: start: 20150908, end: 20151004
  111. INOSINE [Concomitant]
     Active Substance: INOSINE
     Indication: NUTRITIONAL SUPPLEMENTATION
     Dosage: 1000 MG, QD
     Route: 042
     Dates: start: 20150908, end: 20150916
  112. PHENTOLAMINE MESILATE [Concomitant]
     Indication: HYPERTENSION
     Dosage: 5 MG, QD
     Route: 042
     Dates: start: 20150910, end: 20150910
  113. METOPROLOL TARTRATE. [Concomitant]
     Active Substance: METOPROLOL TARTRATE
     Dosage: 25 MG, BID
     Route: 048
     Dates: start: 20151005, end: 20151102
  114. ADVACAL//CALCIUM [Concomitant]
     Indication: MINERAL SUPPLEMENTATION
     Dosage: 3000 MG, QD
     Route: 041
     Dates: start: 20150915, end: 20150915
  115. CEFOPERAZONE SODIUM W/SULBACTAM [Concomitant]
     Active Substance: CEFOPERAZONE SODIUM\SULBACTAM
     Indication: PROPHYLAXIS
     Dosage: 2 G, BID
     Route: 042
     Dates: start: 20150908, end: 20150921
  116. FUROSEMIDE. [Concomitant]
     Active Substance: FUROSEMIDE
     Dosage: 40 MG, QD
     Route: 065
     Dates: start: 20150908, end: 20150910
  117. AMBROXOL [Concomitant]
     Active Substance: AMBROXOL
     Indication: PROPHYLAXIS
     Dosage: 15 MG, BID
     Route: 065
  118. MEROPENEM. [Concomitant]
     Active Substance: MEROPENEM
     Indication: LUNG INFECTION
     Dosage: 500 MG, TID
     Route: 042
     Dates: start: 20151231, end: 20160104
  119. MYCOPHENOLATE SODIUM [Concomitant]
     Active Substance: MYCOPHENOLATE SODIUM
     Dosage: 1120 MG/DL, UNK
     Route: 065
     Dates: start: 20150911, end: 20150913
  120. MYCOPHENOLATE SODIUM [Concomitant]
     Active Substance: MYCOPHENOLATE SODIUM
     Dosage: 720 MG/DL, UNK
     Route: 065
     Dates: start: 20151005, end: 20151201

REACTIONS (9)
  - Fatigue [Recovering/Resolving]
  - Cytomegalovirus infection [Recovered/Resolved]
  - Pain [Unknown]
  - Kidney transplant rejection [Recovered/Resolved]
  - Urine output decreased [Recovered/Resolved]
  - Constipation [Recovering/Resolving]
  - Cytomegalovirus infection [Recovered/Resolved]
  - Abdominal distension [Recovering/Resolving]
  - Renal tubular disorder [Recovered/Resolved]

NARRATIVE: CASE EVENT DATE: 20150912
